FAERS Safety Report 22973585 (Version 2)
Quarter: 2023Q4

REPORT INFORMATION
  Report Type: Spontaneous
  Country: FR (occurrence: FR)
  Receive Date: 20230922
  Receipt Date: 20231113
  Transmission Date: 20240110
  Serious: Yes (Hospitalization, Other)
  Sender: FDA-Public Use
  Company Number: FR-PFIZER INC-PV202300108392

PATIENT
  Age: 30 Year
  Sex: Male

DRUGS (9)
  1. SOLU-MEDROL [Suspect]
     Active Substance: METHYLPREDNISOLONE SODIUM SUCCINATE
     Indication: Neurosarcoidosis
     Dosage: 120 MG, SINGLE
     Dates: start: 20190423, end: 20190423
  2. SOLU-MEDROL [Suspect]
     Active Substance: METHYLPREDNISOLONE SODIUM SUCCINATE
     Dosage: 120 MG, SINGLE
     Dates: start: 20190424, end: 20190424
  3. SOLU-MEDROL [Suspect]
     Active Substance: METHYLPREDNISOLONE SODIUM SUCCINATE
     Dosage: 120 MG, SINGLE
     Dates: start: 20190425, end: 20190425
  4. METHOTREXATE [Suspect]
     Active Substance: METHOTREXATE
     Indication: Neurosarcoidosis
     Dosage: 15 MG, WEEKLY ON WEDNESDAYS
     Dates: start: 20190528, end: 202111
  5. PREDNISONE [Suspect]
     Active Substance: PREDNISONE
     Indication: Neurosarcoidosis
     Dosage: 70 MG, DAILY
     Dates: start: 20190430, end: 20190508
  6. PREDNISONE [Suspect]
     Active Substance: PREDNISONE
     Dosage: 60 MG, DAILY
     Dates: start: 20190509, end: 20190520
  7. PREDNISONE [Suspect]
     Active Substance: PREDNISONE
     Dosage: 50 MG, DAILY
     Dates: start: 20190521, end: 20190603
  8. PREDNISONE [Suspect]
     Active Substance: PREDNISONE
     Dosage: 40 MG, DAILY
     Dates: start: 20190604, end: 20190617
  9. PREDNISONE [Suspect]
     Active Substance: PREDNISONE
     Dosage: 30 MG, DAILY
     Dates: start: 20190618, end: 201909

REACTIONS (4)
  - Osteonecrosis [Recovered/Resolved with Sequelae]
  - Sepsis [Recovered/Resolved with Sequelae]
  - Staphylococcal bacteraemia [Recovered/Resolved with Sequelae]
  - Off label use [Unknown]

NARRATIVE: CASE EVENT DATE: 20200101
